FAERS Safety Report 19578447 (Version 5)
Quarter: 2021Q4

REPORT INFORMATION
  Report Type: Spontaneous
  Country: AU (occurrence: AU)
  Receive Date: 20210719
  Receipt Date: 20211201
  Transmission Date: 20220303
  Serious: Yes (Other)
  Sender: FDA-Public Use
  Company Number: AU-GSKCCFAPAC-CASE-01260803_AE-47157

PATIENT
  Sex: Female

DRUGS (1)
  1. VENTOLIN [Suspect]
     Active Substance: ALBUTEROL SULFATE
     Indication: Product used for unknown indication
     Dosage: 100 UG, 1 X 200 D

REACTIONS (4)
  - Lower respiratory tract infection [Unknown]
  - Illness [Unknown]
  - Product dose omission issue [Unknown]
  - Product complaint [Unknown]
